FAERS Safety Report 13076155 (Version 1)
Quarter: 2016Q4

REPORT INFORMATION
  Report Type: Spontaneous
  Country: US (occurrence: US)
  Receive Date: 20161230
  Receipt Date: 20161230
  Transmission Date: 20170207
  Serious: Yes (Other)
  Sender: FDA-Public Use
  Company Number: US-SUPERNUS PHARMACEUTICALS, INC.-2016SUP00018

PATIENT
  Sex: Male

DRUGS (2)
  1. OXTELLAR XR [Suspect]
     Active Substance: OXCARBAZEPINE
     Dosage: 2 CAPSULES, 1X/DAY
     Dates: start: 20151226
  2. LAMOTRIGINE. [Suspect]
     Active Substance: LAMOTRIGINE
     Dosage: 100 MG, 1X/DAY

REACTIONS (6)
  - Tremor [Unknown]
  - Nausea [Unknown]
  - Insomnia [Unknown]
  - Somnolence [Unknown]
  - Nervousness [Unknown]
  - Dyspnoea [Recovered/Resolved]
